FAERS Safety Report 17437711 (Version 1)
Quarter: 2020Q1

REPORT INFORMATION
  Report Type: Report from Study
  Country: None (occurrence: IT)
  Receive Date: 20200219
  Receipt Date: 20200219
  Transmission Date: 20200409
  Serious: Yes (Other)
  Sender: FDA-Public Use
  Company Number: IT-ABBVIE-19S-083-2693796-00

PATIENT
  Age: 73 Year
  Sex: Female

DRUGS (2)
  1. DUODOPA [Suspect]
     Active Substance: CARBIDOPA\LEVODOPA
     Dosage: MD: 4,5+3?CR: 3,2 (14H)?ED: 2,8
     Route: 050
  2. DUODOPA [Suspect]
     Active Substance: CARBIDOPA\LEVODOPA
     Indication: PARKINSON^S DISEASE
     Dosage: MD 5,5(+3) CR 4,7 ED 2,5
     Route: 050
     Dates: start: 20150515

REACTIONS (2)
  - Fungal infection [Unknown]
  - Stoma site erythema [Recovered/Resolved]

NARRATIVE: CASE EVENT DATE: 201902
